FAERS Safety Report 6467103-1 (Version None)
Quarter: 2009Q4

REPORT INFORMATION
  Report Type: 
  Country: None (occurrence: None)
  Receive Date: 20091202
  Receipt Date: 20091120
  Transmission Date: 20100525
  Serious: Yes (Hospitalization)
  Sender: FDA-Public Use
  Company Number: FR-PFIZER INC-2009300611

PATIENT
  Age: 69 Year
  Sex: Male

DRUGS (13)
  1. EPIRUBICIN HCL [Suspect]
     Indication: GASTRIC CANCER
     Dosage: 255.5 MG
     Dates: start: 20070105
  2. EPIRUBICIN HCL [Suspect]
     Dosage: 251 MG
     Dates: start: 20070309
  3. EPIRUBICIN HCL [Suspect]
     Dosage: 257.5 MG
     Dates: start: 20070511
  4. CISPLATIN [Suspect]
     Indication: GASTRIC CANCER
     Dosage: 306.6 MG
     Dates: start: 20070105
  5. CISPLATIN [Suspect]
     Dosage: 99 MG
     Dates: start: 20070309
  6. SKENAN [Suspect]
     Indication: PAIN
     Dosage: 20 MG, 2 TIMES
     Route: 048
     Dates: start: 20070101
  7. CAPECITABINE [Suspect]
     Indication: GASTRIC CANCER
     Dosage: 145600 MG
     Dates: start: 20070105
  8. CAPECITABINE [Suspect]
     Dosage: 105000 MG
     Dates: start: 20070309
  9. CAPECITABINE [Suspect]
     Dosage: 63000 MG
     Dates: start: 20070511
  10. ACTISKENAN [Concomitant]
     Indication: PAIN
     Dosage: 10 MG, 6 TIMES
     Route: 048
     Dates: start: 20070111
  11. STABLON [Concomitant]
     Indication: DEPRESSION
     Dosage: 1 DF, 3 TIMES
     Route: 048
     Dates: start: 20050101
  12. TRANXENE [Concomitant]
     Indication: DEPRESSION
     Dosage: 1 DF, 3 TIMES
     Route: 048
     Dates: start: 20050101
  13. MOPRAL [Concomitant]
     Indication: GASTRITIS
     Dosage: 1 DF, UNK
     Route: 048
     Dates: start: 20070101

REACTIONS (1)
  - CONFUSIONAL STATE [None]
